FAERS Safety Report 9279987 (Version 2)
Quarter: 2013Q2

REPORT INFORMATION
  Report Type: Spontaneous
  Country: US (occurrence: US)
  Receive Date: 20130509
  Receipt Date: 20130606
  Transmission Date: 20140414
  Serious: Yes (Other)
  Sender: FDA-Public Use
  Company Number: US-AMGEN-USASP2013030847

PATIENT
  Age: 72 Year
  Sex: Female
  Weight: 91.61 kg

DRUGS (3)
  1. PROLIA [Suspect]
     Indication: OSTEOPOROSIS POSTMENOPAUSAL
     Dosage: 60 MG, Q6MO
     Dates: start: 20130416, end: 20130416
  2. LEXAPRO [Concomitant]
  3. LIPITOR [Concomitant]

REACTIONS (3)
  - Rash maculo-papular [Recovered/Resolved]
  - Dermatitis [Recovered/Resolved]
  - Injection site rash [Unknown]
